FAERS Safety Report 5236417-5 (Version None)
Quarter: 2007Q1

REPORT INFORMATION
  Report Type: 
  Country: None (occurrence: None)
  Receive Date: 20061208
  Receipt Date: 20060802
  Transmission Date: 20070707
  Serious: Yes (Other)
  Sender: FDA-Public Use
  Company Number: 2006UW15495

PATIENT
  Age: 67 Year
  Sex: Female
  Weight: 58.967 kg

DRUGS (3)
  1. CRESTOR [Suspect]
     Indication: BLOOD CHOLESTEROL INCREASED
     Dosage: 10 MG DAILY PO
     Route: 048
     Dates: start: 20050101
  2. SECTRAL [Concomitant]
  3. XANAX [Concomitant]

REACTIONS (1)
  - SINUS HEADACHE [None]
